FAERS Safety Report 5663513-0 (Version None)
Quarter: 2008Q1

REPORT INFORMATION
  Report Type: 
  Country: None (occurrence: None)
  Receive Date: 20080307
  Receipt Date: 20080224
  Transmission Date: 20080703
  Serious: Yes (Other)
  Sender: FDA-Public Use
  Company Number: 2008SP004230

PATIENT
  Age: 19 Year
  Sex: Male

DRUGS (1)
  1. CLARITIN [Suspect]
     Indication: DRUG USE FOR UNKNOWN INDICATION
     Dosage: 6 DF; ONCE; PO
     Route: 048
     Dates: start: 20080224

REACTIONS (2)
  - INCORRECT DOSE ADMINISTERED [None]
  - SUICIDAL BEHAVIOUR [None]
